FAERS Safety Report 11908102 (Version 1)
Quarter: 2016Q1

REPORT INFORMATION
  Report Type: Spontaneous
  Country: AR (occurrence: AR)
  Receive Date: 20160111
  Receipt Date: 20160111
  Transmission Date: 20160526
  Serious: Yes (Hospitalization)
  Sender: FDA-Public Use
  Company Number: AR-PFIZER INC-2016006465

PATIENT
  Age: 38 Year
  Sex: Female

DRUGS (1)
  1. SUTENT [Suspect]
     Active Substance: SUNITINIB MALATE
     Indication: PANCREATIC NEUROENDOCRINE TUMOUR
     Dosage: 3 WEEKS ON, 1 WEEK OFF
     Dates: start: 20150601

REACTIONS (2)
  - Cushing^s syndrome [Not Recovered/Not Resolved]
  - Blood corticotrophin abnormal [Not Recovered/Not Resolved]

NARRATIVE: CASE EVENT DATE: 201512
